FAERS Safety Report 5426134-0 (Version None)
Quarter: 2007Q3

REPORT INFORMATION
  Report Type: 
  Country: None (occurrence: None)
  Receive Date: 20070827
  Receipt Date: 20070823
  Transmission Date: 20080115
  Serious: Yes (Life-Threatening, Disabling)
  Sender: FDA-Public Use
  Company Number: GB-ASTRAZENECA-2007GB01742

PATIENT
  Age: 42 Year
  Sex: Male
  Weight: 96 kg

DRUGS (2)
  1. QUETIAPINE FUMARATE [Suspect]
     Indication: MOOD DISORDER DUE TO A GENERAL MEDICAL CONDITION
     Route: 048
     Dates: start: 20020201, end: 20040801
  2. VALPROATE SODIUM [Concomitant]
     Indication: MOOD DISORDER DUE TO A GENERAL MEDICAL CONDITION
     Route: 048

REACTIONS (7)
  - DIZZINESS [None]
  - ERECTILE DYSFUNCTION [None]
  - HEADACHE [None]
  - INSOMNIA [None]
  - LETHARGY [None]
  - NAUSEA [None]
  - VISION BLURRED [None]
